FAERS Safety Report 14063057 (Version 3)
Quarter: 2017Q4

REPORT INFORMATION
  Report Type: Report from Study
  Country: AR (occurrence: AR)
  Receive Date: 20171009
  Receipt Date: 20171026
  Transmission Date: 20180321
  Serious: Yes (Death, Life-Threatening, Hospitalization)
  Sender: FDA-Public Use
  Company Number: PHHY2017AR147512

PATIENT
  Sex: Male

DRUGS (3)
  1. SERTRALINE [Concomitant]
     Active Substance: SERTRALINE HYDROCHLORIDE
     Indication: DEPRESSION
     Dosage: 0.5 DF, BID (HALF TABLET AT 4 PM AND HALF TABLET AT 8 PM)
     Route: 065
  2. COSENTYX [Suspect]
     Active Substance: SECUKINUMAB
     Indication: PSORIASIS
     Dosage: 300 MG, QMO
     Route: 065
     Dates: start: 20160614
  3. COSENTYX [Suspect]
     Active Substance: SECUKINUMAB
     Indication: PSORIATIC ARTHROPATHY

REACTIONS (12)
  - Fistula [Fatal]
  - Pulmonary oedema [Fatal]
  - Thrombosis [Fatal]
  - Lung disorder [Fatal]
  - Pyrexia [Fatal]
  - Malaise [Fatal]
  - Haemorrhage [Fatal]
  - Weight increased [Unknown]
  - Pulmonary embolism [Fatal]
  - Inappropriate schedule of drug administration [Unknown]
  - Dyspnoea [Fatal]
  - Abdominal pain upper [Unknown]
